FAERS Safety Report 12876056 (Version 1)
Quarter: 2016Q4

REPORT INFORMATION
  Report Type: Spontaneous
  Country: US (occurrence: US)
  Receive Date: 20161024
  Receipt Date: 20161024
  Transmission Date: 20170207
  Serious: No
  Sender: FDA-Public Use
  Company Number: US-JAZZ-2016-US-015485

PATIENT
  Sex: Female

DRUGS (41)
  1. XYREM [Suspect]
     Active Substance: SODIUM OXYBATE
     Dosage: DOSE ADJUSTMENTS
     Route: 048
     Dates: start: 201402, end: 201504
  2. SULFAMETHOXAZOLE AND TRIMETHOPRIM [Concomitant]
     Active Substance: SULFAMETHOXAZOLE\TRIMETHOPRIM
  3. PROAIR HFA [Concomitant]
     Active Substance: ALBUTEROL SULFATE
  4. LEVOTHYROXINE. [Concomitant]
     Active Substance: LEVOTHYROXINE
  5. NORCO [Concomitant]
     Active Substance: ACETAMINOPHEN\HYDROCODONE BITARTRATE
  6. LEVOFLOXACIN. [Concomitant]
     Active Substance: LEVOFLOXACIN
  7. OMEPRAZOLE. [Concomitant]
     Active Substance: OMEPRAZOLE
  8. FERROUS FUMARATE [Concomitant]
     Active Substance: FERROUS FUMARATE
  9. AMITIZA [Concomitant]
     Active Substance: LUBIPROSTONE
  10. MELOXICAM. [Concomitant]
     Active Substance: MELOXICAM
  11. FENTANYL. [Concomitant]
     Active Substance: FENTANYL
  12. NAPROXEN. [Concomitant]
     Active Substance: NAPROXEN
  13. PRAMIPEXOLE DIHCL [Concomitant]
     Active Substance: PRAMIPEXOLE DIHYDROCHLORIDE
  14. CYMBALTA [Concomitant]
     Active Substance: DULOXETINE HYDROCHLORIDE
  15. NUVIGIL [Concomitant]
     Active Substance: ARMODAFINIL
  16. POTASSIUM [Concomitant]
     Active Substance: POTASSIUM
  17. FORTEO [Concomitant]
     Active Substance: TERIPARATIDE
  18. LATUDA [Concomitant]
     Active Substance: LURASIDONE HYDROCHLORIDE
  19. MORPHINE SULFATE. [Concomitant]
     Active Substance: MORPHINE SULFATE
  20. ADDERALL [Concomitant]
     Active Substance: AMPHETAMINE ASPARTATE\AMPHETAMINE SULFATE\DEXTROAMPHETAMINE SACCHARATE\DEXTROAMPHETAMINE SULFATE
  21. CALCIUM [Concomitant]
     Active Substance: CALCIUM
  22. VITAMIN B12 [Concomitant]
     Active Substance: CYANOCOBALAMIN
  23. ASPIRIN. [Concomitant]
     Active Substance: ASPIRIN
  24. TRAMADOL. [Concomitant]
     Active Substance: TRAMADOL
  25. VITAMIN D3 [Concomitant]
     Active Substance: CHOLECALCIFEROL
  26. PERCOCET [Concomitant]
     Active Substance: ACETAMINOPHEN\OXYCODONE HYDROCHLORIDE
  27. GABAPENTIN. [Concomitant]
     Active Substance: GABAPENTIN
  28. MODAFINIL. [Concomitant]
     Active Substance: MODAFINIL
  29. OXYCODONE AND ACETAMINOPHEN [Concomitant]
     Active Substance: ACETAMINOPHEN\OXYCODONE HYDROCHLORIDE
  30. XYREM [Suspect]
     Active Substance: SODIUM OXYBATE
     Dosage: 4.5 G, BID
     Route: 048
     Dates: start: 201504
  31. OXCARBAZEPINE. [Concomitant]
     Active Substance: OXCARBAZEPINE
  32. SINEMET [Concomitant]
     Active Substance: CARBIDOPA\LEVODOPA
  33. OXYCODONE [Concomitant]
     Active Substance: OXYCODONE
  34. CLONAZEPAM. [Concomitant]
     Active Substance: CLONAZEPAM
  35. XYREM [Suspect]
     Active Substance: SODIUM OXYBATE
     Indication: NARCOLEPSY
     Dosage: 2.25 G, BID
     Route: 048
     Dates: start: 201401, end: 201402
  36. LORAZEPAM. [Concomitant]
     Active Substance: LORAZEPAM
  37. NABUMETONE. [Concomitant]
     Active Substance: NABUMETONE
  38. RANITIDINE. [Concomitant]
     Active Substance: RANITIDINE
  39. BACLOFEN. [Concomitant]
     Active Substance: BACLOFEN
  40. OXTELLAR [Concomitant]
  41. ZOLPIDEM [Concomitant]
     Active Substance: ZOLPIDEM\ZOLPIDEM TARTRATE

REACTIONS (1)
  - Treatment noncompliance [Unknown]
